FAERS Safety Report 8016478-0 (Version None)
Quarter: 2011Q4

REPORT INFORMATION
  Report Type: 
  Country: None (occurrence: None)
  Receive Date: 20111230
  Receipt Date: 20111229
  Transmission Date: 20120403
  Serious: Yes (Death)
  Sender: FDA-Public Use
  Company Number: DE-ABBOTT-11P-062-0881435-00

PATIENT
  Age: 82 Year
  Sex: Male
  Weight: 60 kg

DRUGS (3)
  1. LEUPROLIDE ACETATE [Suspect]
     Indication: PROSTATE CANCER
     Route: 058
     Dates: start: 20110505
  2. FLUTAMIDE [Concomitant]
     Indication: ANTIANDROGEN THERAPY
     Route: 048
  3. ZOMETA [Concomitant]
     Indication: PRODUCT USED FOR UNKNOWN INDICATION
     Route: 042
     Dates: start: 20110505

REACTIONS (1)
  - GASTRIC CANCER [None]
